FAERS Safety Report 12691028 (Version 3)
Quarter: 2016Q4

REPORT INFORMATION
  Report Type: Report from Study
  Country: GB (occurrence: GB)
  Receive Date: 20160826
  Receipt Date: 20161129
  Transmission Date: 20170207
  Serious: Yes (Death, Hospitalization, Other)
  Sender: FDA-Public Use
  Company Number: GB-AMGEN-GBRSP2016110496

PATIENT
  Age: 77 Year
  Sex: Female
  Weight: 59 kg

DRUGS (9)
  1. DIOVAN [Concomitant]
     Active Substance: VALSARTAN
     Dosage: UNK
  2. PROLIA [Suspect]
     Active Substance: DENOSUMAB
     Dosage: UNK
     Route: 058
  3. ALLOPURINOL. [Concomitant]
     Active Substance: ALLOPURINOL
     Dosage: UNK
  4. ACCRETE D3 [Concomitant]
     Dosage: UNK
  5. PROLIA [Suspect]
     Active Substance: DENOSUMAB
     Indication: OSTEOPOROSIS POSTMENOPAUSAL
     Dosage: 60 MG, Q6MO
     Route: 058
     Dates: start: 20150304, end: 20150902
  6. PREDNISOLONE. [Concomitant]
     Active Substance: PREDNISOLONE
     Dosage: UNK
  7. CARBOCISTEIN [Concomitant]
     Active Substance: CARBOCYSTEINE
     Dosage: UNK
  8. OMEPRAZOL [Concomitant]
     Active Substance: OMEPRAZOLE
     Dosage: UNK
  9. DIGOXIN. [Concomitant]
     Active Substance: DIGOXIN
     Dosage: UNK

REACTIONS (3)
  - Neoplasm malignant [Unknown]
  - Metastases to stomach [Fatal]
  - Metastases to liver [Fatal]

NARRATIVE: CASE EVENT DATE: 20160609
